FAERS Safety Report 4426991-0 (Version None)
Quarter: 2004Q3

REPORT INFORMATION
  Report Type: 
  Country: None (occurrence: None)
  Receive Date: 20040726
  Receipt Date: 20040421
  Transmission Date: 20050211
  Serious: No
  Sender: FDA-Public Use
  Company Number: USA040465466

PATIENT
  Age: 87 Year
  Sex: Female
  Weight: 51 kg

DRUGS (8)
  1. FORTEO [Suspect]
     Indication: BONE DENSITY DECREASED
     Dosage: 20 UG/1 DAY
     Dates: start: 20040317
  2. LASIX [Concomitant]
  3. POTASSIUM [Concomitant]
  4. ISOSORBIDE [Concomitant]
  5. ASPIRIN [Concomitant]
  6. LISINOPRIL [Concomitant]
  7. MIRAPEX (MIRAPEX) [Concomitant]
  8. OSCAL (CALCIUM CARBONATE) [Concomitant]

REACTIONS (4)
  - ASTHENIA [None]
  - FACE INJURY [None]
  - FALL [None]
  - PAIN [None]
